FAERS Safety Report 13252629 (Version 5)
Quarter: 2017Q3

REPORT INFORMATION
  Report Type: Spontaneous
  Country: US (occurrence: US)
  Receive Date: 20170220
  Receipt Date: 20170915
  Transmission Date: 20171127
  Serious: Yes (Life-Threatening, Hospitalization, Other)
  Sender: FDA-Public Use
  Company Number: US-BAYER-2017-028766

PATIENT
  Age: 62 Year
  Sex: Male
  Weight: 92.97 kg

DRUGS (8)
  1. NICODERM CQ [Concomitant]
     Active Substance: NICOTINE
     Dosage: 21 MG, QD
     Route: 061
  2. LIPITOR [Concomitant]
     Active Substance: ATORVASTATIN CALCIUM
     Dosage: UNK UNK, HS
  3. BAYER LOW DOSE [Concomitant]
     Active Substance: ASPIRIN
     Dosage: 81 MG, UNK
  4. ALEVE [Suspect]
     Active Substance: NAPROXEN SODIUM
     Indication: PAIN
     Dosage: 2 DF, UNK
     Route: 048
     Dates: start: 20160903, end: 20160909
  5. ZOFRAN [Concomitant]
     Active Substance: ONDANSETRON HYDROCHLORIDE
  6. ECOTRIN [Concomitant]
     Active Substance: ASPIRIN
     Dosage: UNK UNK, HS
     Route: 048
  7. ATORVASTATIN [Concomitant]
     Active Substance: ATORVASTATIN
     Dosage: 20 MG, UNK
  8. CIALIS [Concomitant]
     Active Substance: TADALAFIL
     Dosage: 5 MG, UNK (DISCONTINUED AFTER SECOND INCIDENT OF HOSPITAL)

REACTIONS (12)
  - Blood pressure decreased [Recovered/Resolved]
  - Dizziness [Recovered/Resolved]
  - Dehydration [Recovered/Resolved]
  - Anal incontinence [None]
  - Syncope [Recovered/Resolved]
  - Diarrhoea [Recovering/Resolving]
  - Hospitalisation [Recovered/Resolved]
  - Pain in jaw [None]
  - Pollakiuria [None]
  - Wrong technique in product usage process [Unknown]
  - Syncope [None]
  - Acute myocardial infarction [None]

NARRATIVE: CASE EVENT DATE: 20160903
